FAERS Safety Report 15694697 (Version 1)
Quarter: 2018Q4

REPORT INFORMATION
  Report Type: Spontaneous
  Country: US (occurrence: US)
  Receive Date: 20181126
  Receipt Date: 20181126
  Transmission Date: 20190205
  Serious: Yes (Hospitalization)
  Sender: FDA-Public Use
  Company Number: None

PATIENT
  Age: 73 Year
  Sex: Male
  Weight: 92.08 kg

DRUGS (1)
  1. AZATHIOPRINE. [Suspect]
     Active Substance: AZATHIOPRINE
     Indication: APLASIA PURE RED CELL
     Route: 048
     Dates: start: 20100101, end: 20180906

REACTIONS (3)
  - Anaemia [None]
  - Transfusion [None]
  - Aplasia pure red cell [None]

NARRATIVE: CASE EVENT DATE: 20180906
